FAERS Safety Report 9024585 (Version 1)
Quarter: 2013Q1

REPORT INFORMATION
  Report Type: Spontaneous
  Country: KR (occurrence: None)
  Receive Date: 20130103
  Receipt Date: 20130103
  Transmission Date: 20140127
  Serious: No
  Sender: FDA-Public Use
  Company Number: DSA_61680_2013

PATIENT
  Sex: 0

DRUGS (3)
  1. FLUOROURACIL (FLUOROURACIL) [Suspect]
     Indication: GASTRIC CANCER
  2. OXALIPLATIN (OXALIPLATIN) [Suspect]
     Indication: GASTRIC CANCER
  3. LEUCOVORIN /00566701/ (LEUCOVORIN-FOLINIC ACID) [Suspect]
     Indication: GASTRIC CANCER

REACTIONS (2)
  - Thrombocytopenia [None]
  - Haematotoxicity [None]
